FAERS Safety Report 7832956-9 (Version None)
Quarter: 2011Q4

REPORT INFORMATION
  Report Type: 
  Country: None (occurrence: None)
  Receive Date: 20111019
  Receipt Date: 20111004
  Transmission Date: 20120403
  Serious: Yes (Other)
  Sender: FDA-Public Use
  Company Number: 2011-01141

PATIENT
  Age: 79 Year
  Sex: Female
  Weight: 57.1532 kg

DRUGS (2)
  1. LEVOFLOXACIN [Suspect]
     Indication: SINUSITIS
     Dosage: 500 MG (500 MG,1 IN 1 D),PER ORAL
     Route: 048
     Dates: start: 20110913, end: 20110923
  2. TRIMETHOPRIM [Concomitant]

REACTIONS (8)
  - NERVOUSNESS [None]
  - DIZZINESS [None]
  - ATRIAL FIBRILLATION [None]
  - ANXIETY [None]
  - INSOMNIA [None]
  - ABDOMINAL DISCOMFORT [None]
  - FALL [None]
  - WRIST FRACTURE [None]
